FAERS Safety Report 9173310 (Version 1)
Quarter: 2013Q1

REPORT INFORMATION
  Report Type: Spontaneous
  Country: GB (occurrence: None)
  Receive Date: 20130314
  Receipt Date: 20130314
  Transmission Date: 20140127
  Serious: Yes (Hospitalization)
  Sender: FDA-Public Use
  Company Number: COL_13091_2013

PATIENT
  Age: 80 Year
  Sex: Female

DRUGS (1)
  1. DURAPHAT [Suspect]
     Indication: DENTAL CARIES
     Dosage: NI/TWICE/ORAL
     Route: 048
     Dates: start: 2012

REACTIONS (1)
  - Constipation [None]
